FAERS Safety Report 19397017 (Version 3)
Quarter: 2021Q3

REPORT INFORMATION
  Report Type: Spontaneous
  Country: US (occurrence: US)
  Receive Date: 20210609
  Receipt Date: 20210706
  Transmission Date: 20211014
  Serious: No
  Sender: FDA-Public Use
  Company Number: US-SA-2021SA181794

PATIENT
  Sex: Female

DRUGS (1)
  1. LANTUS SOLOSTAR [Suspect]
     Active Substance: INSULIN GLARGINE
     Indication: TYPE 2 DIABETES MELLITUS
     Dosage: 20/80 IU,Q12H
     Route: 065

REACTIONS (4)
  - Inappropriate schedule of product administration [Unknown]
  - Poor quality product administered [Unknown]
  - Blood glucose increased [Unknown]
  - Product quality issue [Unknown]

NARRATIVE: CASE EVENT DATE: 20210527
